FAERS Safety Report 6610889-3 (Version None)
Quarter: 2010Q1

REPORT INFORMATION
  Report Type: 
  Country: None (occurrence: None)
  Receive Date: 20100302
  Receipt Date: 20100302
  Transmission Date: 20100710
  Serious: Yes (Hospitalization, Other)
  Sender: FDA-Public Use
  Company Number: CA-ABBOTT-10P-028-0628406-00

PATIENT
  Sex: Female

DRUGS (20)
  1. HUMIRA [Suspect]
     Indication: PSORIASIS
     Route: 058
     Dates: start: 20081219
  2. ATENOLOL [Concomitant]
     Indication: BLOOD PRESSURE
     Route: 048
  3. BACLOFEN [Concomitant]
     Indication: BACK PAIN
     Route: 048
  4. FENOFIBRATE [Concomitant]
     Indication: DRUG USE FOR UNKNOWN INDICATION
     Route: 048
  5. GABAPENTIN [Concomitant]
     Indication: PAIN
     Route: 048
  6. AMITRIPTYLINE HCL [Concomitant]
     Indication: FIBROMYALGIA
     Route: 048
  7. AMITRIPTYLINE HCL [Concomitant]
  8. AMITRIPTYLINE HCL [Concomitant]
     Route: 048
  9. TYLENOL WITH CODEIN #3 [Concomitant]
     Indication: PAIN
     Route: 048
  10. ATIVAN S/L [Concomitant]
     Indication: FIBROMYALGIA
     Route: 060
  11. BUSCOPAN [Concomitant]
     Indication: DRUG USE FOR UNKNOWN INDICATION
     Route: 048
  12. PROCHLORPERAZINE [Concomitant]
     Indication: DRUG USE FOR UNKNOWN INDICATION
     Route: 048
  13. DOXEPIN HCL [Concomitant]
     Indication: NEURALGIA
     Route: 048
  14. DOXEPIN HCL [Concomitant]
  15. CITALOPRAM HYDROBROMIDE [Concomitant]
     Indication: DRUG USE FOR UNKNOWN INDICATION
     Route: 048
     Dates: start: 20090901
  16. HYDROMORPHONE HCL [Concomitant]
     Indication: DRUG USE FOR UNKNOWN INDICATION
     Route: 048
  17. LUPRON DEPOT [Concomitant]
     Indication: RESIDUAL OVARY SYNDROME
     Route: 050
     Dates: start: 19960101
  18. BENADRYL [Concomitant]
     Indication: DRUG USE FOR UNKNOWN INDICATION
     Route: 048
  19. DILAUDID [Concomitant]
     Indication: DRUG USE FOR UNKNOWN INDICATION
     Route: 048
     Dates: start: 20090901
  20. HUMULIN 30/70 MIX [Concomitant]
     Indication: DIABETES MELLITUS
     Dosage: 60 UNITS QAM, 50 UNITS QPM
     Route: 058
     Dates: start: 19940101

REACTIONS (14)
  - BLOOD GLUCOSE INCREASED [None]
  - DIABETES MELLITUS INADEQUATE CONTROL [None]
  - DRUG ABUSE [None]
  - FALL [None]
  - HOSPITALISATION [None]
  - HYPERHIDROSIS [None]
  - JOINT INSTABILITY [None]
  - LOCALISED INFECTION [None]
  - LOWER LIMB FRACTURE [None]
  - OEDEMA PERIPHERAL [None]
  - PAIN [None]
  - PAIN IN EXTREMITY [None]
  - PANIC REACTION [None]
  - PYREXIA [None]
